FAERS Safety Report 16509279 (Version 1)
Quarter: 2019Q3

REPORT INFORMATION
  Report Type: Spontaneous
  Country: IT (occurrence: IT)
  Receive Date: 20190702
  Receipt Date: 20190702
  Transmission Date: 20191004
  Serious: Yes (Other)
  Sender: FDA-Public Use
  Company Number: IT-ACCORD-136059

PATIENT
  Age: 1 Year
  Sex: Female
  Weight: 12 kg

DRUGS (2)
  1. VIDAZA [Concomitant]
     Active Substance: AZACITIDINE
     Indication: JUVENILE CHRONIC MYELOMONOCYTIC LEUKAEMIA
     Dosage: STRENGTH: 25 MG/ML
     Dates: start: 20190506, end: 20190514
  2. ONDANSETRON ACCORD [Suspect]
     Active Substance: ONDANSETRON
     Indication: PROPHYLAXIS OF NAUSEA AND VOMITING
     Route: 042
     Dates: start: 20190506, end: 20190508

REACTIONS (6)
  - Rash macular [Recovered/Resolved]
  - Oxygen saturation decreased [Recovered/Resolved]
  - Abdominal pain [Recovered/Resolved]
  - Cyanosis [Recovered/Resolved]
  - Cough [Recovered/Resolved]
  - Hyperhidrosis [Recovered/Resolved]

NARRATIVE: CASE EVENT DATE: 20190508
